FAERS Safety Report 4947302-8 (Version None)
Quarter: 2006Q1

REPORT INFORMATION
  Report Type: 
  Country: None (occurrence: None)
  Receive Date: 20060313
  Receipt Date: 20060228
  Transmission Date: 20060701
  Serious: Yes (Other)
  Sender: FDA-Public Use
  Company Number: HQWYE936116AUG05

PATIENT
  Age: 57 Year
  Sex: Female
  Weight: 72.64 kg

DRUGS (3)
  1. PREMPRO [Suspect]
     Indication: HORMONE REPLACEMENT THERAPY
  2. ESTRACE [Suspect]
  3. PREMARIN [Suspect]

REACTIONS (7)
  - BREAST CANCER FEMALE [None]
  - CATHETER RELATED COMPLICATION [None]
  - CELLULITIS [None]
  - DEEP VEIN THROMBOSIS [None]
  - LYMPHOEDEMA [None]
  - METASTASES TO LYMPH NODES [None]
  - OESTROGEN RECEPTOR ASSAY POSITIVE [None]
